FAERS Safety Report 15830081 (Version 1)
Quarter: 2019Q1

REPORT INFORMATION
  Report Type: Spontaneous
  Country: ES (occurrence: ES)
  Receive Date: 20190115
  Receipt Date: 20190115
  Transmission Date: 20190417
  Serious: Yes (Hospitalization, Other)
  Sender: FDA-Public Use
  Company Number: ES-SHIRE-ES201815595AA

PATIENT

DRUGS (6)
  1. KIOVIG [Suspect]
     Active Substance: HUMAN IMMUNOGLOBULIN G
     Dosage: 10 G 1X/DAY:QD, 17,5 GRAMOS/DIA
     Route: 042
     Dates: start: 20170925, end: 20170928
  2. PIRIDOSTIGMINA [Concomitant]
     Indication: MYASTHENIA GRAVIS
     Dosage: UNK
  3. FLEBOGAMMA DIF [Suspect]
     Active Substance: HUMAN IMMUNOGLOBULIN G
     Dosage: 2.5 G, 1X/DAY:QD
     Route: 042
     Dates: start: 20170925, end: 20170928
  4. KIOVIG [Suspect]
     Active Substance: HUMAN IMMUNOGLOBULIN G
     Indication: MYASTHENIA GRAVIS
     Dosage: 10 G 1X/DAY:QD, 17,5 GRAMOS/DIA
     Route: 042
     Dates: start: 20170925, end: 20170928
  5. FLEBOGAMMA DIF [Suspect]
     Active Substance: HUMAN IMMUNOGLOBULIN G
     Indication: MYASTHENIA GRAVIS
     Dosage: 5 G, 1X/DAY:QD 17,5 MG/DIA
     Route: 042
     Dates: start: 20170925, end: 20170928
  6. PREDNISONA ALONGA [Concomitant]
     Indication: MYASTHENIA GRAVIS
     Dosage: UNK

REACTIONS (2)
  - Meningitis aseptic [Recovered/Resolved]
  - Hypotension [Recovered/Resolved]

NARRATIVE: CASE EVENT DATE: 20170927
